FAERS Safety Report 23177729 (Version 1)
Quarter: 2023Q4

REPORT INFORMATION
  Report Type: Spontaneous
  Country: US (occurrence: US)
  Receive Date: 20231113
  Receipt Date: 20231113
  Transmission Date: 20240110
  Serious: No
  Sender: FDA-Public Use
  Company Number: US-PERRIGO-23US008393

PATIENT
  Sex: Male
  Weight: 88.435 kg

DRUGS (8)
  1. POLYETHYLENE GLYCOL 3350 [Suspect]
     Active Substance: POLYETHYLENE GLYCOL 3350
     Indication: Constipation
     Dosage: 8.5 G, BID
     Route: 048
     Dates: start: 2014, end: 20230719
  2. POLYETHYLENE GLYCOL 3350 [Suspect]
     Active Substance: POLYETHYLENE GLYCOL 3350
     Dosage: 8.5 G, BID
     Route: 048
     Dates: start: 20230721
  3. ELIQUIS [Concomitant]
     Active Substance: APIXABAN
     Indication: Atrial fibrillation
     Dosage: UNKNOWN, UNKNOWN
     Route: 065
     Dates: start: 202305
  4. LOSARTAN [Concomitant]
     Active Substance: LOSARTAN
     Indication: Hypertension
     Dosage: UNKNOWN, UNKNOWN
     Route: 065
     Dates: start: 202303
  5. AMLODIPINE BESYLATE [Concomitant]
     Active Substance: AMLODIPINE BESYLATE
     Indication: Hypertension
     Dosage: 5 MG, UNKNOWN
     Route: 065
     Dates: start: 202303
  6. AMLODIPINE BESYLATE [Concomitant]
     Active Substance: AMLODIPINE BESYLATE
     Dosage: 10 MG, UNKNOWN
     Route: 065
     Dates: end: 202303
  7. CARVEDILOL [Concomitant]
     Active Substance: CARVEDILOL
     Indication: Hypertension
     Dosage: UNKNOWN, UNKNOWN
     Route: 065
     Dates: start: 202303
  8. PROPRANOLOL [Concomitant]
     Active Substance: PROPRANOLOL HYDROCHLORIDE
     Indication: Hypertension
     Dosage: UNKNOWN, UNKNOWN
     Route: 065
     Dates: end: 2020

REACTIONS (4)
  - Therapeutic product effect decreased [Unknown]
  - Underdose [Recovered/Resolved]
  - Inappropriate schedule of product administration [Recovered/Resolved]
  - Incorrect product administration duration [Recovered/Resolved]

NARRATIVE: CASE EVENT DATE: 20140101
